FAERS Safety Report 4689947-9 (Version None)
Quarter: 2005Q2

REPORT INFORMATION
  Report Type: 
  Country: None (occurrence: None)
  Receive Date: 20050608
  Receipt Date: 20050421
  Transmission Date: 20051028
  Serious: No
  Sender: FDA-Public Use
  Company Number: 2005-BP-06650BP

PATIENT
  Sex: Female

DRUGS (8)
  1. SPIRIVA [Suspect]
     Indication: CHRONIC OBSTRUCTIVE PULMONARY DISEASE
     Dosage: 18 MCG (18 MCG, QD), IH
     Route: 055
     Dates: start: 20050101, end: 20050421
  2. NITRO-DUR [Concomitant]
  3. SYNTHROID [Concomitant]
  4. METOPROLOL TARTRATE [Concomitant]
  5. DIAZEPAM [Concomitant]
  6. ACETASOL HC (ACETASOL HC) [Concomitant]
  7. ALBUTEROL (SALUTAMOL) [Concomitant]
  8. HYDROCHLOROTHIAZIDE [Concomitant]

REACTIONS (2)
  - DRY MOUTH [None]
  - VISION BLURRED [None]
